FAERS Safety Report 7973771 (Version 3)
Quarter: 2014Q2

REPORT INFORMATION
  Report Type: Spontaneous
  Country: US (occurrence: US)
  Receive Date: 20110603
  Receipt Date: 20140428
  Transmission Date: 20141212
  Serious: Yes (Life-Threatening, Other)
  Sender: FDA-Public Use
  Company Number: US-ROXANE LABORATORIES, INC.-2011-RO-00748RO

PATIENT
  Age: 46 Year
  Sex: Female

DRUGS (1)
  1. LITHIUM CARBONATE [Suspect]
     Indication: BIPOLAR DISORDER
     Route: 065

REACTIONS (2)
  - Acute respiratory distress syndrome [Recovered/Resolved]
  - Toxicity to various agents [Recovered/Resolved]
